FAERS Safety Report 5370282-0 (Version None)
Quarter: 2007Q2

REPORT INFORMATION
  Report Type: 
  Country: None (occurrence: None)
  Receive Date: 20070626
  Receipt Date: 20070613
  Transmission Date: 20071010
  Serious: Yes (Life-Threatening, Hospitalization)
  Sender: FDA-Public Use
  Company Number: US-AVENTIS-200714543US

PATIENT
  Sex: Female

DRUGS (2)
  1. LOVENOX [Suspect]
     Dosage: DOSE: UNK
  2. LOVENOX [Suspect]
     Dosage: DOSE: UNK

REACTIONS (5)
  - ANURIA [None]
  - CARDIAC ARREST [None]
  - INJECTION SITE BRUISING [None]
  - RENAL FAILURE [None]
  - RETROPERITONEAL HAEMORRHAGE [None]
